FAERS Safety Report 4978761-2 (Version None)
Quarter: 2006Q2

REPORT INFORMATION
  Report Type: 
  Country: None (occurrence: None)
  Receive Date: 20060420
  Receipt Date: 20050414
  Transmission Date: 20061013
  Serious: Yes (Hospitalization)
  Sender: FDA-Public Use
  Company Number: US-MERCK-0504USA02591

PATIENT
  Age: 63 Year
  Sex: Female
  Weight: 91 kg

DRUGS (7)
  1. VIOXX [Suspect]
     Indication: BACK PAIN
     Route: 048
     Dates: start: 20000101, end: 20040101
  2. VIOXX [Suspect]
     Route: 048
     Dates: start: 20000101, end: 20040101
  3. VIOXX [Suspect]
     Indication: ARTHRITIS
     Route: 048
     Dates: start: 20000101, end: 20040101
  4. VIOXX [Suspect]
     Route: 048
     Dates: start: 20000101, end: 20040101
  5. LOTREL [Concomitant]
     Route: 065
  6. LISINOPRIL [Concomitant]
     Route: 065
  7. LIPITOR [Concomitant]
     Route: 065

REACTIONS (3)
  - HYPERTENSION [None]
  - PALPITATIONS [None]
  - THROMBOSIS [None]
